FAERS Safety Report 18991254 (Version 2)
Quarter: 2021Q2

REPORT INFORMATION
  Report Type: Report from Study
  Country: US (occurrence: US)
  Receive Date: 20210310
  Receipt Date: 20210414
  Transmission Date: 20210717
  Serious: Yes (Other)
  Sender: FDA-Public Use
  Company Number: US-MYLANLABS-2021M1013887

PATIENT
  Sex: Female

DRUGS (5)
  1. DEPAKOTE [Suspect]
     Active Substance: DIVALPROEX SODIUM
     Indication: PRODUCT USED FOR UNKNOWN INDICATION
     Dosage: UNK
     Route: 065
     Dates: start: 20190430
  2. CLOZAPINE. [Suspect]
     Active Substance: CLOZAPINE
     Dosage: 175 MILLIGRAM
     Route: 048
     Dates: start: 20190430
  3. CLOZAPINE. [Suspect]
     Active Substance: CLOZAPINE
     Indication: CRANIOCEREBRAL INJURY
     Dosage: UNK
     Route: 065
     Dates: start: 201703, end: 201704
  4. CLOZAPINE. [Suspect]
     Active Substance: CLOZAPINE
     Dosage: 100 MILLIGRAM
     Route: 065
     Dates: start: 201706
  5. TEGRETOL [Suspect]
     Active Substance: CARBAMAZEPINE
     Indication: CRANIOCEREBRAL INJURY
     Dosage: UNK
     Route: 065
     Dates: start: 201703, end: 201704

REACTIONS (5)
  - Choking [Unknown]
  - Syncope [Unknown]
  - Dyspnoea [Not Recovered/Not Resolved]
  - Cough [Not Recovered/Not Resolved]
  - Malaise [Not Recovered/Not Resolved]
